FAERS Safety Report 8308954-8 (Version None)
Quarter: 2012Q1

REPORT INFORMATION
  Report Type: 
  Country: None (occurrence: None)
  Receive Date: 20120327
  Receipt Date: 20110315
  Transmission Date: 20120608
  Serious: Yes (Other)
  Sender: FDA-Public Use
  Company Number: PHHY2011US13113

PATIENT
  Age: 56 Year
  Sex: Female
  Weight: 78.4 kg

DRUGS (2)
  1. GLEEVEC [Suspect]
     Indication: CHRONIC MYELOID LEUKAEMIA
     Dosage: 400 MG DAILY, ORAL
     Route: 048
     Dates: start: 20100730
  2. HYDROCHLOROTHIAZIDE [Concomitant]

REACTIONS (3)
  - RASH PRURITIC [None]
  - RASH ERYTHEMATOUS [None]
  - RASH [None]
